FAERS Safety Report 8470401-3 (Version None)
Quarter: 2012Q2

REPORT INFORMATION
  Report Type: 
  Country: None (occurrence: None)
  Receive Date: 20120627
  Receipt Date: 20120613
  Transmission Date: 20120825
  Serious: Yes (Hospitalization)
  Sender: FDA-Public Use
  Company Number: GB-MYLANLABS-2012S1012042

PATIENT
  Age: 37 Year
  Sex: Male

DRUGS (6)
  1. OMEPRAZOLE [Suspect]
     Indication: ABDOMINAL DISCOMFORT
     Dates: start: 20110603, end: 20111001
  2. QUETIAPINE [Concomitant]
     Indication: PRODUCT USED FOR UNKNOWN INDICATION
  3. OMEPRAZOLE [Suspect]
     Indication: ABDOMINAL DISCOMFORT
     Route: 048
     Dates: start: 20110427
  4. DOXYCYCLINE [Concomitant]
     Indication: PRODUCT USED FOR UNKNOWN INDICATION
     Dates: start: 20111114
  5. TRIMETHOPRIM [Concomitant]
     Indication: PRODUCT USED FOR UNKNOWN INDICATION
     Dates: start: 20111114
  6. LAXIDO [Concomitant]
     Indication: PRODUCT USED FOR UNKNOWN INDICATION
     Dates: start: 20111104

REACTIONS (13)
  - HAIR COLOUR CHANGES [None]
  - HYPERCHLORHYDRIA [None]
  - JAUNDICE [None]
  - PHOTOSENSITIVITY REACTION [None]
  - ABDOMINAL DISCOMFORT [None]
  - DENTAL CARIES [None]
  - VOMITING [None]
  - ANAEMIA [None]
  - DRY SKIN [None]
  - PYREXIA [None]
  - NAUSEA [None]
  - TEMPERATURE REGULATION DISORDER [None]
  - ANXIETY [None]
